FAERS Safety Report 23085430 (Version 1)
Quarter: 2023Q4

REPORT INFORMATION
  Report Type: Spontaneous
  Country: JP (occurrence: JP)
  Receive Date: 20231019
  Receipt Date: 20231019
  Transmission Date: 20240110
  Serious: Yes (Death, Other)
  Sender: FDA-Public Use
  Company Number: JP-PFIZER INC-202300333524

PATIENT
  Age: 4 Year
  Sex: Male

DRUGS (1)
  1. BESPONSA [Suspect]
     Active Substance: INOTUZUMAB OZOGAMICIN
     Indication: Acute lymphocytic leukaemia

REACTIONS (3)
  - Neoplasm progression [Fatal]
  - Venoocclusive liver disease [Recovered/Resolved]
  - Off label use [Unknown]
